FAERS Safety Report 14646605 (Version 1)
Quarter: 2018Q1

REPORT INFORMATION
  Report Type: Spontaneous
  Country: CN (occurrence: CN)
  Receive Date: 20180316
  Receipt Date: 20180316
  Transmission Date: 20180509
  Serious: Yes (Other)
  Sender: FDA-Public Use
  Company Number: PHHY2018CN036288

PATIENT
  Sex: Male

DRUGS (5)
  1. METHYLPREDNISOLONE. [Suspect]
     Active Substance: METHYLPREDNISOLONE
     Indication: EXOPHTHALMOS
     Dosage: 0.12 G, QD
     Route: 042
     Dates: start: 2014
  2. METHYLPREDNISOLONE. [Suspect]
     Active Substance: METHYLPREDNISOLONE
     Dosage: 0.24 G, QD
     Route: 042
     Dates: start: 2015
  3. METHYLPREDNISOLONE. [Suspect]
     Active Substance: METHYLPREDNISOLONE
     Dosage: 0.08 G, QD
     Route: 042
     Dates: start: 2014
  4. METHYLPREDNISOLONE. [Suspect]
     Active Substance: METHYLPREDNISOLONE
     Dosage: 0.48 G, QD
     Route: 042
     Dates: start: 2015
  5. METHYLPREDNISOLONE. [Suspect]
     Active Substance: METHYLPREDNISOLONE
     Dosage: 0.12 G, QD
     Route: 042
     Dates: start: 2015

REACTIONS (7)
  - Gait inability [Unknown]
  - Drug intolerance [Unknown]
  - Product use in unapproved indication [Unknown]
  - Drug-induced liver injury [Unknown]
  - Headache [Unknown]
  - Dizziness [Unknown]
  - Muscular weakness [Unknown]
